FAERS Safety Report 14617936 (Version 2)
Quarter: 2018Q2

REPORT INFORMATION
  Report Type: Spontaneous
  Country: US (occurrence: US)
  Receive Date: 20180309
  Receipt Date: 20180406
  Transmission Date: 20180711
  Serious: No
  Sender: FDA-Public Use
  Company Number: US-ASTRAZENECA-2018SE28483

PATIENT
  Age: 17627 Day
  Sex: Female
  Weight: 68 kg

DRUGS (4)
  1. VENTILIN [Concomitant]
     Indication: ASTHMA
     Dosage: FREQUENCY AS REQUIRED
  2. SYMBICORT [Suspect]
     Active Substance: BUDESONIDE\FORMOTEROL FUMARATE DIHYDRATE
     Indication: ASTHMA
     Dosage: 80/4.5, TWO PUFFS TWICE A DAY
     Route: 055
     Dates: start: 201709
  3. ALLEGRA [Concomitant]
     Active Substance: FEXOFENADINE HYDROCHLORIDE
     Indication: HYPERSENSITIVITY
     Dosage: FREQUENCY AS REQUIRED
  4. SINGULAIR [Concomitant]
     Active Substance: MONTELUKAST SODIUM
     Dosage: FREQUENCY AT NIGHT

REACTIONS (3)
  - Device malfunction [Unknown]
  - Nasopharyngitis [Recovered/Resolved]
  - Drug dose omission [Not Recovered/Not Resolved]

NARRATIVE: CASE EVENT DATE: 20180208
